FAERS Safety Report 4667714-X (Version None)
Quarter: 2005Q2

REPORT INFORMATION
  Report Type: 
  Country: None (occurrence: None)
  Receive Date: 20050520
  Receipt Date: 20041007
  Transmission Date: 20051028
  Serious: Yes (Other)
  Sender: FDA-Public Use
  Company Number: PHNU2004DE03470

PATIENT
  Sex: Male
  Weight: 60 kg

DRUGS (7)
  1. MELPHALAN [Concomitant]
     Indication: MULTIPLE MYELOMA
     Route: 048
     Dates: start: 20000501, end: 20010101
  2. PREDNISOLONE [Concomitant]
     Indication: MULTIPLE MYELOMA
     Route: 048
     Dates: start: 20000501, end: 20010101
  3. VINCRISTINE [Concomitant]
     Indication: MULTIPLE MYELOMA
     Route: 042
     Dates: start: 20010201, end: 20010801
  4. IDARUBICIN HCL [Concomitant]
     Indication: MULTIPLE MYELOMA
     Route: 065
     Dates: start: 20010201, end: 20010801
  5. DEXAMETHASONE [Concomitant]
     Indication: MULTIPLE MYELOMA
     Route: 065
     Dates: start: 20010201, end: 20010801
  6. INTERFERON ALFA [Concomitant]
     Indication: MULTIPLE MYELOMA
     Dosage: UNK, UNK
     Route: 065
     Dates: start: 20011101
  7. AREDIA [Suspect]
     Indication: MULTIPLE MYELOMA
     Dosage: 90 MG, UNK
     Route: 042
     Dates: start: 20000501

REACTIONS (2)
  - JAW DISORDER [None]
  - OSTEONECROSIS [None]
